FAERS Safety Report 6278344-0 (Version None)
Quarter: 2009Q3

REPORT INFORMATION
  Report Type: 
  Country: None (occurrence: None)
  Receive Date: 20090720
  Receipt Date: 20090720
  Transmission Date: 20100115
  Serious: No
  Sender: FDA-Public Use
  Company Number: None

PATIENT
  Age: 50 Year
  Sex: Female
  Weight: 63.5036 kg

DRUGS (1)
  1. TOPAMAX [Suspect]
     Indication: MIGRAINE
     Dosage: NOT SURE AS NEEDED PO
     Route: 048
     Dates: start: 20080101, end: 20090710

REACTIONS (3)
  - HEARING IMPAIRED [None]
  - HYPOACUSIS [None]
  - TINNITUS [None]
